FAERS Safety Report 5876795-7 (Version None)
Quarter: 2008Q3

REPORT INFORMATION
  Report Type: 
  Country: None (occurrence: None)
  Receive Date: 20080910
  Receipt Date: 20080909
  Transmission Date: 20090109
  Serious: Yes (Death)
  Sender: FDA-Public Use
  Company Number: JP-ASTRAZENECA-2008AC02431

PATIENT
  Age: 71 Year
  Sex: Male

DRUGS (1)
  1. GEFITINIB [Suspect]
     Indication: LUNG ADENOCARCINOMA

REACTIONS (1)
  - INTERSTITIAL LUNG DISEASE [None]
